FAERS Safety Report 25796338 (Version 1)
Quarter: 2025Q3

REPORT INFORMATION
  Report Type: Spontaneous
  Country: US (occurrence: None)
  Receive Date: 20250912
  Receipt Date: 20250912
  Transmission Date: 20251021
  Serious: No
  Sender: FDA-CTU
  Company Number: None

PATIENT
  Age: 72 Year
  Sex: Female
  Weight: 58.5 kg

DRUGS (10)
  1. EVENITY [Suspect]
     Active Substance: ROMOSOZUMAB-AQQG
     Indication: Osteoporosis
     Route: 050
     Dates: start: 20250515, end: 20250710
  2. ORENCIA [Concomitant]
     Active Substance: ABATACEPT
  3. Exetimibe-Sumvastatin [Concomitant]
  4. MONTELUKAST SODIUM [Concomitant]
     Active Substance: MONTELUKAST SODIUM
  5. AMLODIPINE [Concomitant]
     Active Substance: AMLODIPINE BESYLATE
  6. VITAMIN D [Concomitant]
     Active Substance: VITAMIN D NOS
  7. CALCIUM [Concomitant]
     Active Substance: CALCIUM
  8. MAGNESIUM [Concomitant]
     Active Substance: MAGNESIUM
  9. ALLEGRA [Concomitant]
     Active Substance: FEXOFENADINE HYDROCHLORIDE
  10. VITAMINS [Concomitant]
     Active Substance: VITAMINS

REACTIONS (3)
  - Headache [None]
  - Rash erythematous [None]
  - Rash [None]

NARRATIVE: CASE EVENT DATE: 20250613
